FAERS Safety Report 24583952 (Version 1)
Quarter: 2024Q4

REPORT INFORMATION
  Report Type: Spontaneous
  Country: US (occurrence: None)
  Receive Date: 20241105
  Receipt Date: 20241105
  Transmission Date: 20250114
  Serious: Yes (Hospitalization)
  Sender: Public
  Company Number: None

PATIENT
  Age: 78 Year
  Sex: Female

DRUGS (1)
  1. ENVARSUS XR [Suspect]
     Active Substance: TACROLIMUS

REACTIONS (4)
  - Pharyngitis [None]
  - Fungal infection [None]
  - Hypertension [None]
  - Renal disorder [None]

NARRATIVE: CASE EVENT DATE: 20241024
